FAERS Safety Report 26210717 (Version 1)
Quarter: 2025Q4

REPORT INFORMATION
  Report Type: Spontaneous
  Country: EU (occurrence: EU)
  Receive Date: 20251230
  Receipt Date: 20251230
  Transmission Date: 20260117
  Serious: Yes (Hospitalization, Other)
  Sender: TEVA
  Company Number: EU-TEVA-VS-3407174

PATIENT
  Age: 63 Year
  Sex: Male

DRUGS (4)
  1. MESALAMINE [Suspect]
     Active Substance: MESALAMINE
     Indication: Colitis ulcerative
     Route: 048
  2. BECLOMETHASONE DIPROPIONATE [Concomitant]
     Active Substance: BECLOMETHASONE DIPROPIONATE
     Indication: Colitis ulcerative
     Route: 065
  3. PREDNISONE [Concomitant]
     Active Substance: PREDNISONE
     Indication: Colitis ulcerative
     Dosage: UP TO 50 MG/DAY
     Route: 065
  4. INFLIXIMAB [Suspect]
     Active Substance: INFLIXIMAB
     Indication: Colitis ulcerative
     Dosage: THREE INDUCTION DOSES AND ONE MAINTENANCE DOSE
     Route: 065

REACTIONS (4)
  - Interstitial lung disease [Recovering/Resolving]
  - Colitis ulcerative [Recovering/Resolving]
  - Condition aggravated [Recovering/Resolving]
  - Rebound effect [Unknown]
